FAERS Safety Report 4879371-8 (Version None)
Quarter: 2006Q1

REPORT INFORMATION
  Report Type: 
  Country: None (occurrence: None)
  Receive Date: 20060112
  Receipt Date: 20060104
  Transmission Date: 20060701
  Serious: Yes (Hospitalization, Other)
  Sender: FDA-Public Use
  Company Number: US-MERCK-0601USA00664

PATIENT
  Age: 48 Year
  Sex: Female
  Weight: 120 kg

DRUGS (5)
  1. VIOXX [Suspect]
     Indication: ARTHRITIS
     Route: 048
     Dates: start: 20030101, end: 20041001
  2. ACETAMINOPHEN [Concomitant]
     Route: 065
  3. CODEINE [Concomitant]
     Route: 065
  4. ZEBETA [Concomitant]
     Route: 065
  5. PREMARIN [Concomitant]
     Route: 065

REACTIONS (13)
  - ARRHYTHMIA [None]
  - BACK PAIN [None]
  - BREAST MASS [None]
  - CARDIAC DISORDER [None]
  - CARDIOMEGALY [None]
  - CEREBROVASCULAR ACCIDENT [None]
  - EAR PAIN [None]
  - GASTROOESOPHAGEAL REFLUX DISEASE [None]
  - HYPERTENSION [None]
  - OTORRHOEA [None]
  - PEPTIC ULCER [None]
  - RASH [None]
  - TINNITUS [None]
